FAERS Safety Report 6609058-2 (Version None)
Quarter: 2010Q1

REPORT INFORMATION
  Report Type: 
  Country: None (occurrence: None)
  Receive Date: 20100224
  Receipt Date: 20100224
  Transmission Date: 20100710
  Serious: Yes (Other)
  Sender: FDA-Public Use
  Company Number: None

PATIENT
  Age: 8 Month
  Sex: Female
  Weight: 8.1 kg

DRUGS (2)
  1. SABRIL [Suspect]
     Indication: TUBEROUS SCLEROSIS
     Dosage: 250MG BID PO  (APPROX. 5-7 DAYS)
     Route: 048
     Dates: start: 20100101, end: 20100101
  2. SABRIL [Suspect]
     Indication: TUBEROUS SCLEROSIS
     Dosage: 375MG BID PO
     Route: 048
     Dates: start: 20100101, end: 20100101

REACTIONS (7)
  - AFFECTIVE DISORDER [None]
  - AGITATION [None]
  - CONDITION AGGRAVATED [None]
  - DISEASE RECURRENCE [None]
  - HYPOPHAGIA [None]
  - INFANTILE SPASMS [None]
  - PRODUCT SUBSTITUTION ISSUE [None]
